FAERS Safety Report 15016834 (Version 1)
Quarter: 2018Q2

REPORT INFORMATION
  Report Type: Report from Study
  Country: CO (occurrence: CO)
  Receive Date: 20180615
  Receipt Date: 20180615
  Transmission Date: 20180711
  Serious: Yes (Other)
  Sender: FDA-Public Use
  Company Number: CO-BRISTOL-MYERS SQUIBB COMPANY-BMS-2017-067809

PATIENT
  Age: 60 Year
  Sex: Female

DRUGS (1)
  1. ABATACEPT [Suspect]
     Active Substance: ABATACEPT
     Indication: RHEUMATOID ARTHRITIS
     Dosage: 125 MG, QWK
     Route: 058
     Dates: start: 20160813, end: 20180526

REACTIONS (6)
  - Influenza [Recovering/Resolving]
  - Urticaria [Recovering/Resolving]
  - Bronchitis [Recovering/Resolving]
  - Productive cough [Recovering/Resolving]
  - Psoriatic arthropathy [Recovered/Resolved]
  - Mouth injury [Recovering/Resolving]

NARRATIVE: CASE EVENT DATE: 20170719
